FAERS Safety Report 17555798 (Version 1)
Quarter: 2020Q1

REPORT INFORMATION
  Report Type: Spontaneous
  Country: DE (occurrence: DE)
  Receive Date: 20200318
  Receipt Date: 20200318
  Transmission Date: 20200409
  Serious: Yes (Other)
  Sender: FDA-Public Use
  Company Number: DE-MYLANLABS-2020M1027212

PATIENT

DRUGS (1)
  1. LOSARTAN. [Suspect]
     Active Substance: LOSARTAN
     Indication: PRODUCT USED FOR UNKNOWN INDICATION
     Dosage: UNK (ORAL POWDER)
     Route: 064

REACTIONS (3)
  - Cranial sutures widening [Unknown]
  - Foetal exposure during pregnancy [Recovered/Resolved]
  - Venous thrombosis neonatal [Unknown]
